FAERS Safety Report 7153493-3 (Version None)
Quarter: 2010Q4

REPORT INFORMATION
  Report Type: 
  Country: None (occurrence: None)
  Receive Date: 20101213
  Receipt Date: 20101203
  Transmission Date: 20110411
  Serious: Yes (Hospitalization)
  Sender: FDA-Public Use
  Company Number: B0681944A

PATIENT
  Sex: Female
  Weight: 30 kg

DRUGS (1)
  1. FLIXOTIDE [Suspect]
     Dosage: 100MCG TWICE PER DAY
     Route: 055
     Dates: start: 20040101, end: 20100301

REACTIONS (1)
  - THROMBOCYTOSIS [None]
